FAERS Safety Report 10410380 (Version 3)
Quarter: 2014Q4

REPORT INFORMATION
  Report Type: Report from Study
  Country: US (occurrence: US)
  Receive Date: 20140826
  Receipt Date: 20141024
  Transmission Date: 20150528
  Serious: Yes (Other)
  Sender: FDA-Public Use
  Company Number: US-SA-2014SA072794

PATIENT
  Age: 57 Year
  Sex: Female

DRUGS (5)
  1. CHANTIX [Concomitant]
     Active Substance: VARENICLINE TARTRATE
  2. AUBAGIO [Suspect]
     Active Substance: TERIFLUNOMIDE
     Indication: MULTIPLE SCLEROSIS
     Route: 048
     Dates: start: 20140509
  3. RITALIN [Concomitant]
     Active Substance: METHYLPHENIDATE HYDROCHLORIDE
  4. ORAL ANTIDIABETICS [Concomitant]
     Active Substance: UNSPECIFIED INGREDIENT
  5. AUBAGIO [Suspect]
     Active Substance: TERIFLUNOMIDE
     Indication: MULTIPLE SCLEROSIS
     Route: 048
     Dates: end: 2014

REACTIONS (12)
  - Rash erythematous [Unknown]
  - Nausea [Unknown]
  - Drug dose omission [Unknown]
  - Ocular icterus [Unknown]
  - Pollakiuria [Unknown]
  - Multiple sclerosis relapse [Recovered/Resolved]
  - Rhinorrhoea [Unknown]
  - Muscular weakness [Unknown]
  - Malaise [Unknown]
  - Alopecia [Unknown]
  - Loss of consciousness [Unknown]
  - Cough [Unknown]

NARRATIVE: CASE EVENT DATE: 2014
